FAERS Safety Report 11281909 (Version 1)
Quarter: 2015Q3

REPORT INFORMATION
  Report Type: Spontaneous
  Country: FR (occurrence: FR)
  Receive Date: 20150717
  Receipt Date: 20150717
  Transmission Date: 20151125
  Serious: Yes (Other)
  Sender: FDA-Public Use
  Company Number: FR-ASTRAZENECA-2015SE67693

PATIENT
  Age: 23739 Day
  Sex: Female

DRUGS (12)
  1. TRIFLUCAN [Suspect]
     Active Substance: FLUCONAZOLE
     Indication: PRODUCT USED FOR UNKNOWN INDICATION
     Route: 042
     Dates: start: 20150522, end: 20150616
  2. GLICLAZIDE [Concomitant]
     Active Substance: GLICLAZIDE
  3. EZETIMIBE/SIMVASTATINE [Concomitant]
     Dosage: EZETIMIBE+SIMVASTATINE: 10 MG+ 20 MG EVERY MORNING
  4. TAZOCILLINE [Suspect]
     Active Substance: PIPERACILLIN SODIUM\TAZOBACTAM SODIUM
     Indication: ANTIBIOTIC THERAPY
     Route: 042
     Dates: start: 20150527, end: 20150608
  5. DAUNORUBICINE [Suspect]
     Active Substance: DAUNORUBICIN
     Indication: ACUTE MYELOID LEUKAEMIA
     Route: 042
     Dates: start: 20150521, end: 20150523
  6. CALCIUM/VITAMINE D [Concomitant]
     Dosage: CALCIUM+VITAMINE D: 500 MICROGRAM+400 IU EVERY MORNING , 1 DF
  7. CYTARABINE. [Suspect]
     Active Substance: CYTARABINE
     Indication: ACUTE MYELOID LEUKAEMIA
     Route: 042
     Dates: start: 20150521, end: 20150527
  8. SITAGLIPTINE [Concomitant]
     Dates: start: 20150427
  9. KARDEGIC [Concomitant]
     Active Substance: ASPIRIN LYSINE
  10. INEXIUM [Suspect]
     Active Substance: ESOMEPRAZOLE
     Indication: PRODUCT USED FOR UNKNOWN INDICATION
     Route: 048
     Dates: start: 20150523, end: 20150601
  11. VANCOMYCINE [Suspect]
     Active Substance: VANCOMYCIN
     Indication: PYREXIA
     Route: 042
     Dates: start: 20150604
  12. ATENOLOL. [Concomitant]
     Active Substance: ATENOLOL

REACTIONS (4)
  - Purpura [Recovered/Resolved]
  - Rash maculo-papular [Recovered/Resolved]
  - Rash erythematous [Recovered/Resolved]
  - Pruritus [Recovered/Resolved]

NARRATIVE: CASE EVENT DATE: 20150528
